FAERS Safety Report 10032593 (Version 2)
Quarter: 2014Q1

REPORT INFORMATION
  Report Type: Spontaneous
  Country: US (occurrence: US)
  Receive Date: 20140324
  Receipt Date: 20140324
  Transmission Date: 20141002
  Serious: Yes (Disabling)
  Sender: FDA-Public Use
  Company Number: US-GE HEALTHCARE MEDICAL DIAGNOSTICS-OSCN-PR-0806S-0433

PATIENT
  Age: 47 Year
  Sex: Female
  Weight: 70.75 kg

DRUGS (30)
  1. GADOLINIUM (UNSPECIFIED) [Suspect]
     Indication: PRODUCT USED FOR UNKNOWN INDICATION
     Route: 042
     Dates: start: 20040929, end: 20040929
  2. GADOLINIUM (UNSPECIFIED) [Suspect]
     Route: 042
     Dates: start: 20050708, end: 20050708
  3. MAGNEVIST [Suspect]
     Indication: PRODUCT USED FOR UNKNOWN INDICATION
     Route: 042
     Dates: start: 20040324, end: 20040324
  4. MAGNEVIST [Suspect]
     Route: 042
     Dates: start: 20040330, end: 20040330
  5. MAGNEVIST [Suspect]
     Route: 042
     Dates: start: 20040403, end: 20040403
  6. MAGNEVIST [Suspect]
     Route: 042
     Dates: start: 20040407, end: 20040407
  7. MAGNEVIST [Suspect]
     Route: 042
     Dates: start: 20040426, end: 20040426
  8. MAGNEVIST [Suspect]
     Route: 042
     Dates: start: 20040527, end: 20040527
  9. MAGNEVIST [Suspect]
     Route: 042
     Dates: start: 20050426, end: 20050426
  10. MAGNEVIST [Suspect]
     Route: 042
     Dates: start: 20050427, end: 20050427
  11. HECTOROL [Concomitant]
  12. ERYTHROPOIETIN [Concomitant]
  13. RENAGEL [Concomitant]
  14. PREDNISONE [Concomitant]
  15. ZOVIRAX [Concomitant]
  16. ACETYLSALICYLIC ACID [Concomitant]
  17. LASIX [Concomitant]
  18. KEPPRA [Concomitant]
  19. LOTENSIN [Concomitant]
  20. NEORAL [Concomitant]
  21. PRAVACHOL [Concomitant]
  22. RAPAMUNE [Concomitant]
  23. CYPROHEPTADINE [Concomitant]
  24. IMURAN [Concomitant]
  25. NORVASC [Concomitant]
  26. LABETALOL [Concomitant]
  27. MYCELEX TROCHE [Concomitant]
  28. PHENYTEK [Concomitant]
  29. DEPAKOTE [Concomitant]
  30. MAGNESIUM OXIDE [Concomitant]

REACTIONS (1)
  - Nephrogenic systemic fibrosis [Not Recovered/Not Resolved]
